FAERS Safety Report 14962258 (Version 1)
Quarter: 2018Q2

REPORT INFORMATION
  Report Type: Report from Study
  Country: GB (occurrence: GB)
  Receive Date: 20180601
  Receipt Date: 20180601
  Transmission Date: 20180711
  Serious: Yes (Other)
  Sender: FDA-Public Use
  Company Number: GB-CONCORDIA PHARMACEUTICALS INC.-E2B_00012003

PATIENT
  Age: 61 Year
  Sex: Male

DRUGS (8)
  1. TRIAMCINOLONE ACETONIDE. [Suspect]
     Active Substance: TRIAMCINOLONE ACETONIDE
     Indication: ARTHRALGIA
     Dosage: UNK
     Route: 042
     Dates: start: 2005
  2. DEPOMEDRONE [Suspect]
     Active Substance: METHYLPREDNISOLONE ACETATE
     Indication: ARTHRALGIA
     Dosage: UNK
     Dates: start: 2005
  3. CYCLOSPORIN [Suspect]
     Active Substance: CYCLOSPORINE
     Indication: IMMUNOSUPPRESSION
     Dosage: UNK
     Route: 065
     Dates: start: 1995
  4. ETHAMBUTOL [Suspect]
     Active Substance: ETHAMBUTOL HYDROCHLORIDE
     Indication: MYCOBACTERIUM KANSASII INFECTION
     Dosage: 1000 MG, QD
     Route: 065
  5. RIFAMPICIN [Concomitant]
     Active Substance: RIFAMPIN
     Indication: PRODUCT USED FOR UNKNOWN INDICATION
     Route: 065
  6. CLARITHROMYCIN. [Concomitant]
     Active Substance: CLARITHROMYCIN
     Indication: PRODUCT USED FOR UNKNOWN INDICATION
     Route: 065
  7. PREDNISOLONE. [Suspect]
     Active Substance: PREDNISOLONE
     Indication: IMMUNOSUPPRESSION
     Dosage: 10 MG, QD
     Route: 065
     Dates: start: 1995
  8. AZATHIOPRINE. [Suspect]
     Active Substance: AZATHIOPRINE
     Indication: IMMUNOSUPPRESSION
     Dosage: UNK
     Route: 065
     Dates: start: 1995

REACTIONS (10)
  - Blindness [Unknown]
  - Swelling [Unknown]
  - Pain [Unknown]
  - Tendon rupture [Unknown]
  - Mycobacterium kansasii infection [Unknown]
  - Visual acuity reduced [Unknown]
  - Musculoskeletal stiffness [Unknown]
  - Tenosynovitis [Recovered/Resolved]
  - Product use in unapproved indication [Unknown]
  - Optic neuritis [Not Recovered/Not Resolved]
